FAERS Safety Report 4515692-6 (Version None)
Quarter: 2004Q4

REPORT INFORMATION
  Report Type: 
  Country: None (occurrence: None)
  Receive Date: 20041201
  Receipt Date: 20030113
  Transmission Date: 20050328
  Serious: Yes (Life-Threatening, Hospitalization, Disabling)
  Sender: FDA-Public Use
  Company Number: US-MERCK-0301USA01091

PATIENT
  Age: 61 Year
  Sex: Female
  Weight: 90 kg

DRUGS (1)
  1. VIOXX [Suspect]
     Indication: ARTHRALGIA
     Route: 048
     Dates: start: 20010323, end: 20020515

REACTIONS (9)
  - ANAL FISSURE [None]
  - ANAL SKIN TAGS [None]
  - CARDIOVASCULAR DISORDER [None]
  - DEPRESSION [None]
  - FIBROCYSTIC BREAST DISEASE [None]
  - ISCHAEMIC STROKE [None]
  - MIGRAINE [None]
  - RECTAL ULCER [None]
  - RENAL FAILURE [None]
